FAERS Safety Report 10688380 (Version 1)
Quarter: 2015Q1

REPORT INFORMATION
  Report Type: Spontaneous
  Country: US (occurrence: US)
  Receive Date: 20150102
  Receipt Date: 20150102
  Transmission Date: 20150720
  Serious: No
  Sender: FDA-Public Use
  Company Number: US-BAYER-2014-188028

PATIENT
  Age: 46 Year
  Sex: Female
  Weight: 77.98 kg

DRUGS (5)
  1. CLIMARA [Suspect]
     Active Substance: ESTRADIOL
     Indication: MENOPAUSE
     Dosage: 0.1 MG/D, UNK
     Route: 062
     Dates: start: 201410
  2. ABILIFY [Concomitant]
     Active Substance: ARIPIPRAZOLE
     Indication: FIBROMYALGIA
     Dosage: 10 MG, QD
     Route: 048
     Dates: start: 201409
  3. PROGESTERONE. [Concomitant]
     Active Substance: PROGESTERONE
     Indication: MENOPAUSE
     Dosage: 200 MG, QD
     Route: 048
     Dates: start: 2014
  4. LYRICA [Concomitant]
     Active Substance: PREGABALIN
     Indication: FIBROMYALGIA
     Dosage: 100 MG, TID
     Route: 048
  5. CELEXA [Concomitant]
     Active Substance: CITALOPRAM HYDROBROMIDE
     Indication: DEPRESSION
     Dosage: 40 MG, QD
     Route: 048
     Dates: start: 201304

REACTIONS (4)
  - Product adhesion issue [None]
  - Blood oestrogen decreased [None]
  - Drug administered at inappropriate site [None]
  - Blood testosterone decreased [None]

NARRATIVE: CASE EVENT DATE: 2014
